FAERS Safety Report 23153845 (Version 1)
Quarter: 2023Q4

REPORT INFORMATION
  Report Type: Spontaneous
  Country: PR (occurrence: PR)
  Receive Date: 20231107
  Receipt Date: 20231107
  Transmission Date: 20240110
  Serious: No
  Sender: FDA-Public Use
  Company Number: PR-BAYER-2023A157617

PATIENT
  Age: 31 Year
  Sex: Female

DRUGS (1)
  1. GADOBUTROL [Suspect]
     Active Substance: GADOBUTROL
     Dosage: 6 ML, ONCE
     Dates: start: 20231031, end: 20231031

REACTIONS (3)
  - Pruritus [None]
  - Urticaria [None]
  - Dyspnoea [None]

NARRATIVE: CASE EVENT DATE: 20231031
